FAERS Safety Report 10128671 (Version 1)
Quarter: 2014Q2

REPORT INFORMATION
  Report Type: Spontaneous
  Country: RO (occurrence: RO)
  Receive Date: 20140428
  Receipt Date: 20140428
  Transmission Date: 20141212
  Serious: Yes (Other)
  Sender: FDA-Public Use
  Company Number: RO-VERTEX PHARMACEUTICALS INC-2014-002089

PATIENT
  Sex: 0

DRUGS (3)
  1. INCIVO [Suspect]
     Indication: HEPATITIS C
     Route: 048
  2. PEG-INTERFERON [Suspect]
     Indication: HEPATITIS C
     Dosage: UNK
     Route: 065
  3. RIBAVIRIN [Suspect]
     Indication: HEPATITIS C
     Dosage: UNK
     Route: 065

REACTIONS (8)
  - Hyperuricaemia [Unknown]
  - Anaemia [Unknown]
  - Haemorrhoids thrombosed [Unknown]
  - Diarrhoea [Unknown]
  - Anal pruritus [Unknown]
  - Pruritus [Unknown]
  - Rash [Unknown]
  - Dysgeusia [Unknown]
